FAERS Safety Report 5032639-7 (Version None)
Quarter: 2006Q2

REPORT INFORMATION
  Report Type: 
  Country: None (occurrence: None)
  Receive Date: 20060622
  Receipt Date: 20060612
  Transmission Date: 20061013
  Serious: Yes (Hospitalization, Other)
  Sender: FDA-Public Use
  Company Number: PHEH2006US07679

PATIENT
  Age: 67 Year
  Sex: Female

DRUGS (2)
  1. COENZYME Q10 [Concomitant]
  2. LOTENSIN [Suspect]
     Indication: HYPERTENSION
     Dosage: 10 MG, QD
     Dates: start: 19910101

REACTIONS (4)
  - BLOOD PRESSURE INCREASED [None]
  - CHEST PAIN [None]
  - DEPRESSED MOOD [None]
  - INSOMNIA [None]
